FAERS Safety Report 25988876 (Version 1)
Quarter: 2025Q4

REPORT INFORMATION
  Report Type: Spontaneous
  Country: US (occurrence: US)
  Receive Date: 20251103
  Receipt Date: 20251103
  Transmission Date: 20260118
  Serious: No
  Sender: RIGEL PHARMACEUTICALS
  Company Number: US-RIGL Pharmaceuticals INC-20250100025

PATIENT
  Sex: Female

DRUGS (2)
  1. GAVRETO [Suspect]
     Active Substance: PRALSETINIB
     Indication: Lung neoplasm malignant
     Dosage: 400 MG, QD
     Route: 048
     Dates: start: 20240701
  2. GAVRETO [Suspect]
     Active Substance: PRALSETINIB
     Dosage: 200 MG, QD
     Route: 048

REACTIONS (4)
  - Product use issue [Unknown]
  - Diarrhoea [Unknown]
  - Headache [Unknown]
  - Blood pressure increased [Recovered/Resolved]
